FAERS Safety Report 9531131 (Version 1)
Quarter: 2013Q2

REPORT INFORMATION
  Report Type: Spontaneous
  Country: US (occurrence: None)
  Receive Date: 20130418
  Receipt Date: 20130418
  Transmission Date: 20140414
  Serious: Yes (Other)
  Sender: FDA-Public Use
  Company Number: 1301USA002087

PATIENT
  Age: 46 Year
  Sex: 0

DRUGS (4)
  1. SINGULAIR (MONTELUKAST SODIUM) TABLET [Suspect]
     Indication: ASTHMA
     Dosage: 10 MG PER DAY, ORAL
     Route: 048
  2. PANTOPRAZOLE (PANTOPRAZOLE) [Suspect]
     Dosage: 40 MG PER DAY, ORAL
     Route: 048
  3. ALBUTEROL (ALBUTEROL) [Suspect]
     Dosage: RESPIRATORY (INHALATION)?
     Route: 055
  4. SERETIDE (FLUTICASONE PROPIONATE, SALMETEROL XINAFOATE) [Suspect]
     Dosage: RESPIRATORY (INHALATION)?
     Route: 055

REACTIONS (3)
  - Toothache [None]
  - Tooth disorder [None]
  - Gingivitis [None]
